FAERS Safety Report 7378763-5 (Version None)
Quarter: 2011Q1

REPORT INFORMATION
  Report Type: 
  Country: None (occurrence: None)
  Receive Date: 20110328
  Receipt Date: 20110322
  Transmission Date: 20110831
  Serious: Yes (Death, Hospitalization, Disabling)
  Sender: FDA-Public Use
  Company Number: JP-BRISTOL-MYERS SQUIBB COMPANY-15540818

PATIENT
  Age: 66 Year
  Sex: Male

DRUGS (22)
  1. REYATAZ [Suspect]
     Indication: HIV INFECTION
     Route: 048
     Dates: start: 20070619, end: 20080802
  2. HUMALOG [Concomitant]
     Indication: DIABETES MELLITUS
     Dosage: 7-16UX2/D 26OCT-09NO08,8UX2/D 10NOV-07DE08,14-18UNX3/D 08DE08-30JAN09,9-17UX2/D INJ
     Route: 058
     Dates: start: 20080511, end: 20080802
  3. ISENTRESS [Suspect]
     Indication: HIV INFECTION
     Dosage: 08SEP08-17APR09 28APR09-19MAY09 22MAY09-07JUN09
     Route: 048
     Dates: start: 20080908, end: 20090607
  4. NOVOLIN R [Concomitant]
     Indication: DIABETES MELLITUS
     Dosage: 1APR07-10MAY08,10-14U/D 24AUG-25OCT08,3-15UX2/D 30JAN-20FEB09,2-9UX3/D 5MAR-25MAR09,10-20UX3/D
     Route: 058
     Dates: start: 20070401, end: 20080510
  5. GASTER [Concomitant]
     Indication: PROPHYLAXIS
     Dosage: 1APR07-2AUG08,10MGX2/D 19SEP08-17APR09,20MG/D
     Route: 048
     Dates: start: 20070401, end: 20080802
  6. LEVEMIR [Concomitant]
     Indication: DIABETES MELLITUS
     Dosage: 23JUL-02AUG08,3-5UNITS/D 24AUG-09NOV08,4-8UNITS/D INJ
     Route: 058
     Dates: start: 20080723, end: 20081109
  7. OMEPRAL [Concomitant]
     Indication: PROPHYLAXIS
     Dates: start: 20080911, end: 20080918
  8. RENIVACE [Concomitant]
     Indication: HYPERTENSION
     Dosage: FORM: TABLET.
     Route: 048
     Dates: start: 20090212, end: 20090417
  9. NOVOLIN N [Concomitant]
     Indication: DIABETES MELLITUS
     Dosage: 1APR07-10MAY08,3-5UNITS/D 29JAN09-3FEB09,6 UNITS/D FORM: INJECTION
     Route: 058
     Dates: start: 20070401, end: 20080510
  10. ADVATE [Concomitant]
     Indication: HAEMOPHILIA
     Dosage: INJ,1 DF=1000 UNITS
     Dates: start: 20070814, end: 20080107
  11. CIPROFLOXACIN HCL [Concomitant]
     Indication: EPIDIDYMITIS
     Dosage: FORM: INJ
     Route: 041
     Dates: start: 20081020, end: 20081030
  12. RISPERDAL [Concomitant]
     Indication: PANIC DISORDER
     Dosage: FORM: TABLET
     Route: 048
     Dates: start: 20090212, end: 20090609
  13. LACTULOSE [Concomitant]
     Indication: HEPATITIS C
     Dosage: 12JAN-12MAR09,200MGX3/D,POWDER 13MAR-17APR09,30MLX3/D,SYRUP
     Route: 048
     Dates: start: 20090112, end: 20090312
  14. CONIEL [Concomitant]
     Indication: HYPERTENSION
     Dosage: FORM: TABLET.
     Route: 048
     Dates: start: 20090224, end: 20090406
  15. PAXIL [Concomitant]
     Indication: PANIC DISORDER
     Dosage: FORM: TABLET.
     Route: 048
     Dates: start: 20070401, end: 20080802
  16. LENDORMIN [Concomitant]
     Indication: PANIC DISORDER
     Dosage: FORM: TABLET.
     Route: 048
     Dates: start: 20070401, end: 20080802
  17. CROSS EIGHT M [Concomitant]
     Indication: HAEMOPHILIA
     Dosage: 1000U X2/WK 4AUG-21SEP08,500-1500UX2/D 22SEP08-7JAN09,1000-2000U 1-3T/WK 8JAN-1JUN09 1000U/WK
     Dates: start: 20080108, end: 20080204
  18. HUMULIN R [Concomitant]
     Indication: DIABETES MELLITUS
     Dosage: 1DF=2-8 UNITS ,2-3/DAY INJ
     Route: 058
     Dates: start: 20080817, end: 20080823
  19. RECOMBINATE [Concomitant]
     Indication: HAEMOPHILIA
     Dosage: 1DF=1000 UNITS ,1-2 DAYS, 05FEB08-03AUG08,1000 UNITSX2 /WEEKS
     Dates: start: 20070401, end: 20080813
  20. LANTUS [Concomitant]
     Indication: DIABETES MELLITUS
     Dosage: 08DEC08-28JAN09,5-16UNITS/D 4FEB-27MAR09,6-10UNITS/D INJ
     Route: 058
     Dates: start: 20081208, end: 20090327
  21. EPZICOM [Suspect]
     Indication: HIV INFECTION
     Dosage: 1DF=1 TABLET;1APR07-02AUG08 8SEP08-17APR09 28APR-19MAY09 22MAY-07JUN09
     Route: 048
     Dates: start: 20070401, end: 20090607
  22. GASTER [Concomitant]
     Indication: ABDOMINAL PAIN UPPER
     Dosage: 1APR07-2AUG08,10MGX2/D 19SEP08-17APR09,20MG/D
     Route: 048
     Dates: start: 20070401, end: 20080802

REACTIONS (3)
  - HEPATITIS C [None]
  - CEREBRAL INFARCTION [None]
  - HEPATIC CIRRHOSIS [None]
